FAERS Safety Report 25719847 (Version 1)
Quarter: 2025Q3

REPORT INFORMATION
  Report Type: Report from Study
  Country: US (occurrence: US)
  Receive Date: 20250825
  Receipt Date: 20250825
  Transmission Date: 20251021
  Serious: Yes (Hospitalization, Disabling)
  Sender: UCB
  Company Number: US-UCBSA-2025051082

PATIENT
  Age: 61 Year
  Sex: Male

DRUGS (1)
  1. BIMEKIZUMAB [Suspect]
     Active Substance: BIMEKIZUMAB
     Indication: Psoriasis
     Route: 058
     Dates: start: 20240709

REACTIONS (3)
  - Chronic obstructive pulmonary disease [Not Recovered/Not Resolved]
  - Hepatic steatosis [Not Recovered/Not Resolved]
  - Angioplasty [Not Recovered/Not Resolved]

NARRATIVE: CASE EVENT DATE: 20250210
